FAERS Safety Report 6957732-0 (Version None)
Quarter: 2010Q3

REPORT INFORMATION
  Report Type: 
  Country: None (occurrence: None)
  Receive Date: 20100831
  Receipt Date: 20100823
  Transmission Date: 20110219
  Serious: Yes (Death)
  Sender: FDA-Public Use
  Company Number: TN-SANOFI-AVENTIS-2010SA050755

PATIENT
  Age: 78 Year
  Sex: Female

DRUGS (7)
  1. PLAVIX [Suspect]
     Indication: ACUTE CORONARY SYNDROME
     Route: 048
     Dates: start: 20100301, end: 20100723
  2. PLAVIX [Suspect]
     Indication: ANGIOPLASTY
     Route: 048
     Dates: start: 20100301, end: 20100723
  3. PLAVIX [Suspect]
     Route: 048
     Dates: start: 20100301, end: 20100723
  4. ASPIRIN [Concomitant]
     Indication: ACUTE CORONARY SYNDROME
     Route: 048
     Dates: end: 20100723
  5. CAPTOPRIL [Concomitant]
     Indication: HYPERTENSION
     Route: 048
     Dates: end: 20100723
  6. CRESTOR [Concomitant]
     Indication: DYSLIPIDAEMIA
     Route: 048
     Dates: end: 20100723
  7. OMEPRAZOLE [Concomitant]
     Indication: PRODUCT USED FOR UNKNOWN INDICATION
     Route: 048
     Dates: end: 20100723

REACTIONS (1)
  - CARDIAC FAILURE [None]
